FAERS Safety Report 25225460 (Version 1)
Quarter: 2025Q2

REPORT INFORMATION
  Report Type: Spontaneous
  Country: RO (occurrence: RO)
  Receive Date: 20250422
  Receipt Date: 20250422
  Transmission Date: 20250717
  Serious: Yes (Other)
  Sender: DR REDDYS
  Company Number: RO-ROM-ROU/2025/04/005581

PATIENT
  Age: 69 Year
  Sex: Female

DRUGS (4)
  1. CYCLOPHOSPHAMIDE [Suspect]
     Active Substance: CYCLOPHOSPHAMIDE
     Indication: Breast cancer metastatic
     Dosage: 4 CYCLES OF CYCLOPHOSPHAMIDE EVERY 3 WEEKS
     Route: 065
     Dates: start: 20220601
  2. DOXORUBICIN [Suspect]
     Active Substance: DOXORUBICIN
     Indication: Breast cancer metastatic
     Route: 065
     Dates: start: 20220601
  3. PACLITAXEL [Suspect]
     Active Substance: PACLITAXEL
     Indication: Breast cancer metastatic
     Dosage: STOPPED AFTER 7 CYCLES
     Route: 065
  4. ANASTROZOLE [Concomitant]
     Active Substance: ANASTROZOLE
     Indication: Breast cancer metastatic
     Dosage: ON AN UNKNOWN DATE IN AUG-2022, ANASTROZOLE 1 MG ONCE DAILY VIA ORAL ROUTE WAS GIVEN TO THE PATIENT.
     Route: 048
     Dates: start: 202208

REACTIONS (3)
  - Drug ineffective [Unknown]
  - Neutropenia [Unknown]
  - Disease recurrence [Unknown]

NARRATIVE: CASE EVENT DATE: 20230501
